FAERS Safety Report 6417540-6 (Version None)
Quarter: 2009Q4

REPORT INFORMATION
  Report Type: 
  Country: None (occurrence: None)
  Receive Date: 20091026
  Receipt Date: 20091014
  Transmission Date: 20100525
  Serious: Yes (Hospitalization)
  Sender: FDA-Public Use
  Company Number: 2009-04328

PATIENT
  Age: 68 Year
  Sex: Male
  Weight: 79.5 kg

DRUGS (8)
  1. VELCADE [Suspect]
     Indication: MULTIPLE MYELOMA
     Dosage: 2.6 MG, UNK, IV BOLUS
     Route: 040
     Dates: start: 20090615, end: 20090917
  2. DEXAMETHASONE TAB [Suspect]
     Dosage: 40 MG, UNK, ORAL
     Route: 048
     Dates: start: 20090615, end: 20090917
  3. GRANISETRON  HCL [Concomitant]
  4. TESTOVIRON (TESTOSTERONE ENANTATE) [Concomitant]
  5. SODIUM CHLORIDE 0.9% [Concomitant]
  6. CEFPODOXIME PROXETIL [Concomitant]
  7. RANITIDINE [Concomitant]
  8. ROXITHROMYCIN (ROXITHROMYCIN) [Concomitant]

REACTIONS (6)
  - ADDISON'S DISEASE [None]
  - DIARRHOEA [None]
  - FATIGUE [None]
  - GENERAL PHYSICAL HEALTH DETERIORATION [None]
  - INFECTION [None]
  - WEIGHT DECREASED [None]
